FAERS Safety Report 5959575-3 (Version None)
Quarter: 2008Q4

REPORT INFORMATION
  Report Type: 
  Country: None (occurrence: None)
  Receive Date: 20081118
  Receipt Date: 20081106
  Transmission Date: 20090506
  Serious: Yes (Hospitalization)
  Sender: FDA-Public Use
  Company Number: 230010M08NLD

PATIENT
  Age: 11 Year
  Sex: Male

DRUGS (1)
  1. REBIF [Suspect]
     Indication: OFF LABEL USE
     Dosage: 3 IN 1 WEEKS, SUBCUTANEOUS
     Route: 058
     Dates: start: 20081020, end: 20081030

REACTIONS (3)
  - LEUKOPENIA [None]
  - OFF LABEL USE [None]
  - THROMBOCYTOPENIA [None]
